FAERS Safety Report 15230579 (Version 1)
Quarter: 2018Q3

REPORT INFORMATION
  Report Type: Spontaneous
  Country: US (occurrence: US)
  Receive Date: 20180707
  Receipt Date: 20180707
  Transmission Date: 20181010
  Serious: No
  Sender: FDA-Public Use
  Company Number: None

PATIENT
  Age: 11 Year
  Sex: Female
  Weight: 36.9 kg

DRUGS (4)
  1. GUANFACINE. [Concomitant]
     Active Substance: GUANFACINE
  2. MELATONIN [Concomitant]
     Active Substance: MELATONIN
  3. ARIPIPRAZOLE 5 MG TABLET [Suspect]
     Active Substance: ARIPIPRAZOLE
     Indication: ANGER
     Dosage: ?          QUANTITY:0.5 TABLET(S);?
     Route: 048
     Dates: start: 20180518, end: 20180707
  4. PROZAC [Concomitant]
     Active Substance: FLUOXETINE HYDROCHLORIDE

REACTIONS (3)
  - Tremor [None]
  - Tic [None]
  - Muscle twitching [None]
